FAERS Safety Report 7646352-0 (Version None)
Quarter: 2011Q3

REPORT INFORMATION
  Report Type: 
  Country: None (occurrence: None)
  Receive Date: 20110801
  Receipt Date: 20110718
  Transmission Date: 20111222
  Serious: Yes (Hospitalization)
  Sender: FDA-Public Use
  Company Number: US-BAYER-2010-001660

PATIENT
  Age: 26 Year
  Sex: Female

DRUGS (16)
  1. YASMIN [Suspect]
     Indication: PREMENSTRUAL SYNDROME
  2. IBUPROFEN [Concomitant]
     Dosage: UNK UNK, PRN
  3. CALCIUM VIT D [Concomitant]
     Indication: MEDICAL DIET
     Dosage: UNK
     Dates: start: 20091123, end: 20101213
  4. YASMIN [Suspect]
     Indication: MENSTRUATION IRREGULAR
  5. DROSPIRENONE AND ETHINYL ESTRADIOL [Suspect]
     Indication: MENSTRUATION IRREGULAR
  6. NSAID'S [Concomitant]
     Dosage: UNK UNK, PRN
     Dates: start: 20010101, end: 20110101
  7. LOVAZA [Concomitant]
  8. YASMIN [Suspect]
     Indication: CONTRACEPTION
     Dosage: UNK
     Route: 048
     Dates: start: 20070824, end: 20080727
  9. ALDACTONE [Concomitant]
     Indication: HIRSUTISM
     Dosage: 25 MG, QD
     Dates: start: 20070101, end: 20100101
  10. DROSPIRENONE AND ETHINYL ESTRADIOL [Suspect]
     Indication: CONTRACEPTION
     Dosage: UNK
     Route: 048
     Dates: start: 20080622, end: 20091213
  11. YASMIN [Suspect]
     Indication: ACNE
  12. MULTI-VITAMIN [Concomitant]
     Indication: MEDICAL DIET
     Dosage: UNK
     Dates: start: 20091123, end: 20101213
  13. DROSPIRENONE AND ETHINYL ESTRADIOL [Suspect]
     Indication: ACNE
  14. DROSPIRENONE AND ETHINYL ESTRADIOL [Suspect]
     Indication: PREMENSTRUAL SYNDROME
  15. ZOLOFT [Concomitant]
     Indication: DEPRESSION
     Dosage: UNK
     Dates: start: 20090101, end: 20100101
  16. FLEXERIL [Concomitant]

REACTIONS (4)
  - PULMONARY EMBOLISM [None]
  - DYSPNOEA [None]
  - ANTINUCLEAR ANTIBODY POSITIVE [None]
  - CHEST PAIN [None]
